FAERS Safety Report 9182143 (Version 1)
Quarter: 2013Q1

REPORT INFORMATION
  Report Type: Spontaneous
  Country: US (occurrence: None)
  Receive Date: 20130321
  Receipt Date: 20130321
  Transmission Date: 20140127
  Serious: Yes (Death)
  Sender: FDA-Public Use
  Company Number: None

PATIENT
  Age: 69 Year
  Sex: Female
  Weight: 68.8 kg

DRUGS (1)
  1. HABITROL [Suspect]
     Indication: SMOKING CESSATION THERAPY
     Dosage: 21MG/14MG/7MG HABITROL VARIED WEEKLY TRANSDERMAL
     Route: 062
     Dates: start: 20130109, end: 20130222

REACTIONS (9)
  - Unresponsive to stimuli [None]
  - Respiratory arrest [None]
  - Cardiac arrest [None]
  - Sudden death [None]
  - Mobility decreased [None]
  - Dyspnoea [None]
  - Asthenia [None]
  - Inappropriate schedule of drug administration [None]
  - Treatment noncompliance [None]
